FAERS Safety Report 19797974 (Version 1)
Quarter: 2021Q3

REPORT INFORMATION
  Report Type: Spontaneous
  Country: GB (occurrence: GB)
  Receive Date: 20210907
  Receipt Date: 20210907
  Transmission Date: 20211014
  Serious: Yes (Other)
  Sender: FDA-Public Use
  Company Number: GB-ACCORD-237771

PATIENT
  Age: 74 Year
  Sex: Female
  Weight: 53.59 kg

DRUGS (14)
  1. EVACAL D3 CHEWABLE [Concomitant]
     Dosage: 1500MG/400UNIT
     Dates: start: 20210705
  2. LANSOPRAZOLE. [Concomitant]
     Active Substance: LANSOPRAZOLE
     Dates: start: 20210705
  3. LACTULOSE. [Concomitant]
     Active Substance: LACTULOSE
     Dosage: 3.1?3.7G/5ML
     Dates: start: 20210601
  4. MORPHINE SULPHATE/MORPHINE SULFATE [Concomitant]
     Dosage: 4HRLY 10MG/5ML
     Dates: start: 20210601
  5. PARACETAMOL [Concomitant]
     Active Substance: ACETAMINOPHEN
     Dosage: TAKE 1 OR 2
     Dates: start: 20210601
  6. BENSERAZIDE HYDROCHLORIDE/LEVODOPA [Concomitant]
     Active Substance: BENSERAZIDE HYDROCHLORIDE\LEVODOPA
     Dosage: 50MG/12.5MG, 100MG/25MG
     Dates: start: 20210705
  7. OMEPRAZOLE. [Concomitant]
     Active Substance: OMEPRAZOLE
     Dates: start: 20210616
  8. SERTRALINE [Suspect]
     Active Substance: SERTRALINE HYDROCHLORIDE
     Indication: PRODUCT USED FOR UNKNOWN INDICATION
     Route: 048
  9. ANASTROZOLE. [Concomitant]
     Active Substance: ANASTROZOLE
     Dates: start: 20210601
  10. MOVICOL [Concomitant]
     Active Substance: POLYETHYLENE GLYCOL 3350\POTASSIUM CHLORIDE\SODIUM BICARBONATE\SODIUM CHLORIDE
     Dosage: UP TO 8 SACHETS A DAY
     Dates: start: 20210601
  11. FUCIDIN [Concomitant]
     Active Substance: FUSIDATE SODIUM
     Dosage: 20MG/G 3 TO 4 TIMES DAILY
     Dates: start: 20210602
  12. DOMPERIDONE [Concomitant]
     Active Substance: DOMPERIDONE
     Dosage: UP TO THREE TIMES A DAY
     Dates: start: 20210705
  13. PROPRANOLOL [Concomitant]
     Active Substance: PROPRANOLOL HYDROCHLORIDE
     Dates: start: 20210601
  14. RASAGILINE/RASAGILINE MESYLATE [Concomitant]
     Active Substance: RASAGILINE MESYLATE
     Dates: start: 20210719, end: 20210804

REACTIONS (3)
  - Nausea [Unknown]
  - Hot flush [Unknown]
  - Arthralgia [Recovering/Resolving]

NARRATIVE: CASE EVENT DATE: 20210719
